FAERS Safety Report 7976284-X (Version None)
Quarter: 2011Q4

REPORT INFORMATION
  Report Type: 
  Country: None (occurrence: None)
  Receive Date: 20111213
  Receipt Date: 20111017
  Transmission Date: 20120403
  Serious: No
  Sender: FDA-Public Use
  Company Number: US-AMGEN-USASP2011053807

PATIENT
  Age: 54 Year
  Sex: Female

DRUGS (4)
  1. ENBREL [Suspect]
     Indication: PRODUCT USED FOR UNKNOWN INDICATION
     Dosage: UNK
  2. HUMIRA [Concomitant]
     Indication: PSORIASIS
     Dosage: 40 MG, Q2WK
     Route: 058
     Dates: start: 20080101
  3. VITAMINS                           /90003601/ [Concomitant]
     Dosage: UNK
  4. TAZAROTENE [Concomitant]
     Indication: PSORIASIS
     Dosage: UNK

REACTIONS (4)
  - HEADACHE [None]
  - PAIN [None]
  - OROPHARYNGEAL PAIN [None]
  - THERAPEUTIC RESPONSE DECREASED [None]
